FAERS Safety Report 19173305 (Version 1)
Quarter: 2021Q2

REPORT INFORMATION
  Report Type: Other
  Country: CN (occurrence: CN)
  Receive Date: 20210423
  Receipt Date: 20210423
  Transmission Date: 20210717
  Serious: Yes (Other)
  Sender: FDA-Public Use
  Company Number: CN-ROCHE-2810989

PATIENT
  Sex: Female

DRUGS (4)
  1. DOCETAXEL. [Suspect]
     Active Substance: DOCETAXEL
     Indication: HER2 POSITIVE BREAST CANCER
  2. DOCETAXEL. [Suspect]
     Active Substance: DOCETAXEL
     Indication: BREAST CANCER METASTATIC
     Dosage: DAY 2 OF CYCLE 1
     Route: 042
  3. TRASTUZUMAB. [Suspect]
     Active Substance: TRASTUZUMAB
     Indication: BREAST CANCER METASTATIC
     Dosage: INITIAL DOSE, DAY 1, CYCLE 1
     Route: 042
  4. TRASTUZUMAB. [Suspect]
     Active Substance: TRASTUZUMAB
     Indication: HER2 POSITIVE BREAST CANCER
     Route: 042

REACTIONS (25)
  - Febrile neutropenia [Unknown]
  - Bradycardia [Unknown]
  - Sinus tachycardia [Unknown]
  - Tricuspid valve disease [Unknown]
  - Ventricular extrasystoles [Unknown]
  - Neutrophil count decreased [Unknown]
  - Left atrial enlargement [Unknown]
  - Cardiac failure chronic [Unknown]
  - Anaemia [Unknown]
  - Myocardial ischaemia [Unknown]
  - Mitral valve incompetence [Unknown]
  - Infusion related reaction [Unknown]
  - Cardiac failure congestive [Unknown]
  - Tricuspid valve incompetence [Unknown]
  - Ventricular arrhythmia [Unknown]
  - Arrhythmia [Unknown]
  - Platelet count decreased [Unknown]
  - Atrioventricular block [Unknown]
  - Palpitations [Unknown]
  - Bone marrow failure [Unknown]
  - Cardiotoxicity [Unknown]
  - White blood cell count decreased [Unknown]
  - Sinus arrhythmia [Unknown]
  - Systolic dysfunction [Unknown]
  - Supraventricular extrasystoles [Unknown]
